FAERS Safety Report 25882939 (Version 1)
Quarter: 2025Q4

REPORT INFORMATION
  Report Type: Spontaneous
  Country: EU (occurrence: EU)
  Receive Date: 20251006
  Receipt Date: 20251006
  Transmission Date: 20260117
  Serious: Yes (Other)
  Sender: CELLTRION
  Company Number: EU-JNJFOC-20250927257

PATIENT

DRUGS (2)
  1. USTEKINUMAB [Suspect]
     Active Substance: USTEKINUMAB
     Indication: Crohn^s disease
     Dosage: 90 MILLIGRAM EVERY 8 WEEKS
     Route: 064
     Dates: start: 20240709, end: 20250315
  2. USTEKINUMAB [Suspect]
     Active Substance: USTEKINUMAB
     Dosage: 14-WEEKS OPTIMISED
     Route: 064
     Dates: start: 20250117, end: 20250515

REACTIONS (2)
  - Foetal disorder [Unknown]
  - Foetal exposure during pregnancy [Not Recovered/Not Resolved]
